FAERS Safety Report 6772883-1 (Version None)
Quarter: 2010Q2

REPORT INFORMATION
  Report Type: 
  Country: None (occurrence: None)
  Receive Date: 20100616
  Receipt Date: 20100603
  Transmission Date: 20101027
  Serious: Yes (Hospitalization, Disabling, Other)
  Sender: FDA-Public Use
  Company Number: US-ELI_LILLY_AND_COMPANY-US200911004810

PATIENT
  Sex: Male
  Weight: 140.73 kg

DRUGS (10)
  1. ZYPREXA [Suspect]
     Dosage: 1 UNK, UNK
     Dates: start: 20020101
  2. ZOLOFT [Concomitant]
     Indication: DEPRESSION
     Dosage: 50 MG, EACH MORNING
     Dates: start: 20020119
  3. ATENOLOL [Concomitant]
     Indication: HYPERTENSION
     Dosage: 50 MG, DAILY (1/D)
     Dates: start: 20020119
  4. VIOXX [Concomitant]
     Indication: PAIN
     Dosage: 25 MG, EACH MORNING
     Dates: start: 20020119
  5. DYAZIDE [Concomitant]
     Indication: HYPERTENSION
  6. TYLENOL (CAPLET) [Concomitant]
     Indication: PAIN
     Dosage: 1000 MG, AS NEEDED
  7. IBUPROFEN [Concomitant]
     Indication: PAIN
     Dosage: 400 MG, AS NEEDED
  8. ENALAPRIL MALEATE [Concomitant]
  9. LOTREL [Concomitant]
     Indication: HYPERTENSION
     Dosage: 1 D/F, DAILY (1/D)
  10. NEURONTIN [Concomitant]
     Indication: CONVULSION
     Dosage: 300 MG, UNK

REACTIONS (15)
  - BLOOD CHOLESTEROL INCREASED [None]
  - CELLULITIS [None]
  - CHOLECYSTITIS [None]
  - CHOLELITHIASIS [None]
  - DEEP VEIN THROMBOSIS [None]
  - DIABETES MELLITUS [None]
  - HAEMORRHOIDAL HAEMORRHAGE [None]
  - METABOLIC DISORDER [None]
  - OBESITY [None]
  - PARAESTHESIA [None]
  - PERIPHERAL VASCULAR DISORDER [None]
  - SKIN ULCER [None]
  - STRESS [None]
  - VENOUS INSUFFICIENCY [None]
  - WEIGHT INCREASED [None]
